FAERS Safety Report 14390802 (Version 2)
Quarter: 2018Q4

REPORT INFORMATION
  Report Type: Spontaneous
  Country: US (occurrence: US)
  Receive Date: 20180116
  Receipt Date: 20181128
  Transmission Date: 20190204
  Serious: Yes (Other)
  Sender: FDA-Public Use
  Company Number: US-ASTRAZENECA-2018SE04062

PATIENT
  Sex: Female

DRUGS (31)
  1. METOCLOPRAMIDE. [Concomitant]
     Active Substance: METOCLOPRAMIDE
  2. LOSARTAN. [Concomitant]
     Active Substance: LOSARTAN
     Dosage: 100 MG
  3. MICARDIS [Concomitant]
     Active Substance: TELMISARTAN
     Dosage: 80 MG
  4. CEPHALEXIN. [Concomitant]
     Active Substance: CEPHALEXIN
     Dosage: 500 MG
  5. NEXIUM [Suspect]
     Active Substance: ESOMEPRAZOLE MAGNESIUM
     Indication: GASTROOESOPHAGEAL REFLUX DISEASE
     Route: 048
     Dates: start: 2006, end: 2008
  6. ACTOS [Concomitant]
     Active Substance: PIOGLITAZONE HYDROCHLORIDE
     Dosage: 15 MG
  7. WELCHOL [Concomitant]
     Active Substance: COLESEVELAM HYDROCHLORIDE
     Dosage: 625 MG
  8. CYPROHEPTADINE. [Concomitant]
     Active Substance: CYPROHEPTADINE
  9. CIPROFLOXACIN. [Concomitant]
     Active Substance: CIPROFLOXACIN
     Dosage: 500 MG TAB
  10. NITROFURANTOIN. [Concomitant]
     Active Substance: NITROFURANTOIN
     Dosage: 100 MG CAP
  11. XYZAL [Concomitant]
     Active Substance: LEVOCETIRIZINE DIHYDROCHLORIDE
     Dosage: 5 MG
  12. FUROSEMIDE. [Concomitant]
     Active Substance: FUROSEMIDE
     Dosage: 40 MG
  13. LEVOTHYROXINE. [Concomitant]
     Active Substance: LEVOTHYROXINE
  14. NASONEX [Concomitant]
     Active Substance: MOMETASONE FUROATE
     Dosage: 50 MCG
  15. RHINOCORT [Concomitant]
     Active Substance: BUDESONIDE
     Dosage: 100 MG CAP
  16. GLIPIZIDE. [Concomitant]
     Active Substance: GLIPIZIDE
     Dosage: 100 MG
  17. FERROUS SULFATE. [Concomitant]
     Active Substance: FERROUS SULFATE
  18. TEKTURNA [Concomitant]
     Active Substance: ALISKIREN HEMIFUMARATE
     Dosage: 10 MG
  19. LIPITOR [Concomitant]
     Active Substance: ATORVASTATIN CALCIUM
     Dosage: 10 MG
  20. ALLOPURINOL. [Concomitant]
     Active Substance: ALLOPURINOL
     Dosage: 100 MG
  21. LEXAPRO [Concomitant]
     Active Substance: ESCITALOPRAM OXALATE
     Dosage: 10 MG
  22. CITALOPRAM HYDROBROMIDE. [Concomitant]
     Active Substance: CITALOPRAM HYDROBROMIDE
  23. CARAFATE [Concomitant]
     Active Substance: SUCRALFATE
     Dosage: 1 GM/10 ML
  24. NOVOLIN [Concomitant]
     Active Substance: INSULIN HUMAN
  25. ALPRAZOLAM. [Concomitant]
     Active Substance: ALPRAZOLAM
  26. DIOVAN [Concomitant]
     Active Substance: VALSARTAN
     Dosage: 160 MG
  27. PHENYTOIN. [Concomitant]
     Active Substance: PHENYTOIN
  28. VITAMIN D2 [Concomitant]
     Active Substance: ERGOCALCIFEROL
     Dosage: 50,000 UNIT
  29. HYDROXYZINE [Concomitant]
     Active Substance: HYDROXYZINE HYDROCHLORIDE
  30. TOPROL XL [Concomitant]
     Active Substance: METOPROLOL SUCCINATE
  31. FOSRENOL [Concomitant]
     Active Substance: LANTHANUM CARBONATE
     Dosage: 500 MG

REACTIONS (1)
  - Chronic kidney disease [Unknown]
